FAERS Safety Report 7406169-9 (Version None)
Quarter: 2011Q2

REPORT INFORMATION
  Report Type: 
  Country: None (occurrence: None)
  Receive Date: 20110405
  Receipt Date: 20110405
  Transmission Date: 20111010
  Serious: Yes (Other)
  Sender: FDA-Public Use
  Company Number: None

PATIENT
  Age: 28 Year
  Sex: Male
  Weight: 72.5755 kg

DRUGS (1)
  1. MIXED AMPH SALTS - GEN. ADDERALL 20MG COREPHARMA [Suspect]
     Indication: ATTENTION DEFICIT/HYPERACTIVITY DISORDER
     Dosage: 20MG X2 DAILY PO
     Route: 048
     Dates: start: 20110327, end: 20110328

REACTIONS (9)
  - DIZZINESS [None]
  - PARAESTHESIA [None]
  - HEADACHE [None]
  - ANXIETY [None]
  - HEART RATE INCREASED [None]
  - DIARRHOEA [None]
  - PRODUCT SUBSTITUTION ISSUE [None]
  - FEELING ABNORMAL [None]
  - DYSPNOEA [None]
